FAERS Safety Report 26127373 (Version 2)
Quarter: 2025Q4

REPORT INFORMATION
  Report Type: Spontaneous
  Country: EU (occurrence: EU)
  Receive Date: 20251205
  Receipt Date: 20251217
  Transmission Date: 20260117
  Serious: Yes (Life-Threatening)
  Sender: NOVO NORDISK
  Company Number: EU-NOVOPROD-1572637

PATIENT
  Age: 276 Month
  Sex: Male
  Weight: 33.2 kg

DRUGS (3)
  1. NORDITROPIN [Suspect]
     Active Substance: SOMATROPIN
     Indication: Product use in unapproved indication
     Dosage: 0.9 MG, QD
     Dates: start: 20250214
  2. NORDITROPIN [Suspect]
     Active Substance: SOMATROPIN
     Dosage: UNK (DOSE INCREASED)
     Dates: start: 20250623
  3. ASPIRIN [Concomitant]
     Active Substance: ASPIRIN
     Indication: Product used for unknown indication
     Dosage: 100 MG, QD

REACTIONS (3)
  - Coarctation of the aorta [Recovered/Resolved with Sequelae]
  - Condition aggravated [Recovered/Resolved with Sequelae]
  - Product use in unapproved indication [Unknown]

NARRATIVE: CASE EVENT DATE: 20250214
